FAERS Safety Report 7601728-2 (Version None)
Quarter: 2011Q3

REPORT INFORMATION
  Report Type: 
  Country: None (occurrence: None)
  Receive Date: 20110711
  Receipt Date: 20110701
  Transmission Date: 20111222
  Serious: Yes (Hospitalization)
  Sender: FDA-Public Use
  Company Number: US-ABBOTT-11P-163-0717487-00

PATIENT
  Sex: Female
  Weight: 75.818 kg

DRUGS (14)
  1. ALLERGY SHOTS [Concomitant]
     Indication: HYPERSENSITIVITY
  2. ATARAX [Concomitant]
     Indication: PRURITUS
     Dosage: 1-2 25MG TABS EVERY 6 HOURS AS NEEDED
     Route: 048
  3. LORTAB [Concomitant]
     Indication: PAIN
  4. XYZAL [Concomitant]
     Indication: HYPERSENSITIVITY
  5. HUMIRA [Suspect]
     Indication: PSORIASIS
     Dates: start: 20080301, end: 20101001
  6. ARAVA [Concomitant]
     Indication: PSORIATIC ARTHROPATHY
     Route: 048
     Dates: start: 20110101
  7. HUMIRA [Suspect]
     Indication: PSORIATIC ARTHROPATHY
     Dates: start: 20101201
  8. CYCLOSPORINE [Concomitant]
     Indication: PSORIASIS
     Dosage: DAILY DOSE: 100MG
     Route: 048
     Dates: start: 20110304
  9. NEURONTIN [Concomitant]
     Indication: PAIN
     Route: 048
  10. EFFEXOR [Concomitant]
     Indication: DEPRESSION
     Dosage: 150 EVERY DAY
     Dates: start: 20060101
  11. LOVAZA [Concomitant]
     Indication: BLOOD TRIGLYCERIDES INCREASED
  12. DIOVAN [Concomitant]
     Indication: ATRIAL FIBRILLATION
     Route: 048
     Dates: start: 20060101
  13. TRIAMCINOLONE [Concomitant]
     Indication: PSORIASIS
     Dosage: 0.1% TO AFFECTED AREAS TWICE DAILY
  14. ACIPHEX [Concomitant]
     Indication: GASTROOESOPHAGEAL REFLUX DISEASE

REACTIONS (11)
  - NAUSEA [None]
  - PSORIASIS [None]
  - CHEST DISCOMFORT [None]
  - MALAISE [None]
  - INJECTION SITE PAIN [None]
  - ASTHMA [None]
  - DIZZINESS [None]
  - UPPER RESPIRATORY TRACT INFECTION [None]
  - OROPHARYNGEAL PAIN [None]
  - INJECTION SITE HAEMATOMA [None]
  - DRUG INEFFECTIVE [None]
